FAERS Safety Report 9412178 (Version 1)
Quarter: 2013Q3

REPORT INFORMATION
  Report Type: Spontaneous
  Country: US (occurrence: US)
  Receive Date: 20130722
  Receipt Date: 20130722
  Transmission Date: 20140515
  Serious: No
  Sender: FDA-Public Use
  Company Number: US-US-EMD SERONO, INC.-7113122

PATIENT
  Sex: Male
  Weight: 93 kg

DRUGS (3)
  1. REBIF [Suspect]
     Indication: MULTIPLE SCLEROSIS
     Dates: end: 201112
  2. REBIF [Suspect]
     Dates: end: 20120601
  3. NAMENDA [Concomitant]
     Indication: MULTIPLE SCLEROSIS

REACTIONS (3)
  - Tremor [Unknown]
  - Injection site discolouration [Unknown]
  - Injection site pain [Unknown]
